FAERS Safety Report 12530143 (Version 1)
Quarter: 2016Q3

REPORT INFORMATION
  Report Type: Spontaneous
  Country: US (occurrence: US)
  Receive Date: 20160706
  Receipt Date: 20160706
  Transmission Date: 20161109
  Serious: No
  Sender: FDA-Public Use
  Company Number: US-009507513-1606USA010828

PATIENT
  Sex: Male

DRUGS (1)
  1. REMERON [Suspect]
     Active Substance: MIRTAZAPINE
     Dosage: 7.5 MG, UNK
     Route: 048
     Dates: start: 2016

REACTIONS (2)
  - Sexual dysfunction [Unknown]
  - Somnolence [Unknown]

NARRATIVE: CASE EVENT DATE: 2016
